FAERS Safety Report 15678203 (Version 1)
Quarter: 2018Q4

REPORT INFORMATION
  Report Type: Spontaneous
  Country: US (occurrence: US)
  Receive Date: 20181201
  Receipt Date: 20181201
  Transmission Date: 20190205
  Serious: Yes (Hospitalization, Other)
  Sender: FDA-Public Use
  Company Number: US-AUROBINDO-AUR-APL-2018-057247

PATIENT
  Age: 63 Year
  Sex: Male

DRUGS (1)
  1. TRANEXAMIC ACID. [Suspect]
     Active Substance: TRANEXAMIC ACID
     Indication: SPINAL ANAESTHESIA
     Dosage: 200 MILLIGRAM
     Route: 037

REACTIONS (10)
  - Heart rate increased [Unknown]
  - Myoclonus [Recovered/Resolved]
  - Hypertension [Unknown]
  - Toxicity to various agents [Unknown]
  - Oxygen saturation decreased [Unknown]
  - Pain [Recovered/Resolved]
  - Agitation [Recovered/Resolved]
  - Respiratory rate increased [Unknown]
  - Hypoxia [Unknown]
  - Accidental exposure to product [Unknown]
